FAERS Safety Report 8972321 (Version 2)
Quarter: 2013Q1

REPORT INFORMATION
  Report Type: Spontaneous
  Country: CH (occurrence: CH)
  Receive Date: 20121219
  Receipt Date: 20130102
  Transmission Date: 20140127
  Serious: Yes (Life-Threatening, Hospitalization, Disabling, Other)
  Sender: FDA-Public Use
  Company Number: CH-JNJFOC-20121206903

PATIENT
  Age: 31 Year
  Sex: Male
  Weight: 89 kg

DRUGS (12)
  1. XARELTO [Suspect]
     Indication: EMBOLISM VENOUS
     Route: 048
     Dates: start: 20120926, end: 20121005
  2. XARELTO [Suspect]
     Indication: EMBOLISM VENOUS
     Route: 048
     Dates: start: 20121006, end: 20121027
  3. XARELTO [Suspect]
     Indication: THROMBOSIS PROPHYLAXIS
     Route: 048
     Dates: start: 20120926, end: 20121005
  4. XARELTO [Suspect]
     Indication: THROMBOSIS PROPHYLAXIS
     Route: 048
     Dates: start: 20121006, end: 20121027
  5. ATACAND [Concomitant]
     Route: 048
  6. NORVASC [Concomitant]
     Dosage: EVERY MORNING
     Route: 048
  7. BELOC ZOK [Concomitant]
     Route: 048
  8. IMUREK [Concomitant]
     Route: 048
  9. ATORVASTATIN [Concomitant]
     Route: 048
  10. INSULIN [Concomitant]
     Route: 065
  11. TRIATEC [Concomitant]
     Route: 048
  12. SANDIMMUN [Concomitant]
     Route: 048

REACTIONS (1)
  - Ischaemic stroke [Not Recovered/Not Resolved]
